FAERS Safety Report 9312502 (Version 1)
Quarter: 2013Q2

REPORT INFORMATION
  Report Type: Spontaneous
  Country: GB (occurrence: None)
  Receive Date: 20130520
  Receipt Date: 20130520
  Transmission Date: 20140414
  Serious: Yes (Hospitalization)
  Sender: FDA-Public Use
  Company Number: AUR-APL-2013-03954

PATIENT
  Age: 25 Year
  Sex: Male

DRUGS (3)
  1. NEVIRAPINE [Suspect]
     Indication: PROPHYLAXIS AGAINST HIV INFECTION
  2. STAVUDINE (STAVUDINE) [Concomitant]
  3. LAMIVUDINE [Suspect]

REACTIONS (1)
  - Stevens-Johnson syndrome [None]
